FAERS Safety Report 7770863-0 (Version None)
Quarter: 2011Q3

REPORT INFORMATION
  Report Type: 
  Country: None (occurrence: None)
  Receive Date: 20110922
  Receipt Date: 20101229
  Transmission Date: 20111222
  Serious: No
  Sender: FDA-Public Use
  Company Number: US-ASTRAZENECA-2010SE61170

PATIENT
  Sex: Male

DRUGS (8)
  1. EFFEXOR [Concomitant]
     Indication: BIPOLAR DISORDER
  2. LEXAPRO [Concomitant]
  3. INVEGA [Concomitant]
     Indication: BIPOLAR DISORDER
  4. LIPITOR [Concomitant]
     Indication: HYPERCHOLESTEROLAEMIA
  5. VASOTEC [Concomitant]
     Indication: HYPERTENSION
  6. THERAFLU COLD AND CONGESTION [Concomitant]
  7. SEROQUEL [Suspect]
     Indication: BIPOLAR DISORDER
     Route: 048
     Dates: start: 20090101
  8. WELLBUTRIN [Concomitant]
     Indication: BIPOLAR DISORDER

REACTIONS (3)
  - SLEEP PHASE RHYTHM DISTURBANCE [None]
  - THIRST [None]
  - POLLAKIURIA [None]
